FAERS Safety Report 21228155 (Version 2)
Quarter: 2022Q3

REPORT INFORMATION
  Report Type: Spontaneous
  Country: US (occurrence: US)
  Receive Date: 20220818
  Receipt Date: 20220915
  Transmission Date: 20221027
  Serious: No
  Sender: FDA-Public Use
  Company Number: US-PFIZER INC-202201065308

PATIENT
  Age: 36 Year
  Sex: Female
  Weight: 63.492 kg

DRUGS (1)
  1. PAXLOVID [Suspect]
     Active Substance: NIRMATRELVIR\RITONAVIR
     Indication: COVID-19 treatment
     Dosage: [PF-07321332 300 MG]/[RITONAVIR 100 MG]; 2X/DAY;
     Dates: start: 20220812, end: 20220813

REACTIONS (5)
  - Vomiting [Recovered/Resolved]
  - Taste disorder [Recovered/Resolved]
  - Nausea [Recovered/Resolved]
  - Dry mouth [Recovered/Resolved]
  - Incorrect product administration duration [Unknown]

NARRATIVE: CASE EVENT DATE: 20220812
